FAERS Safety Report 17763862 (Version 3)
Quarter: 2020Q3

REPORT INFORMATION
  Report Type: Spontaneous
  Country: US (occurrence: US)
  Receive Date: 20200510
  Receipt Date: 20200813
  Transmission Date: 20201102
  Serious: Yes (Other)
  Sender: FDA-Public Use
  Company Number: US-ASTRAZENECA-2020SE59096

PATIENT
  Age: 26140 Day
  Sex: Male
  Weight: 70.3 kg

DRUGS (6)
  1. FOLIC ACID. [Concomitant]
     Active Substance: FOLIC ACID
     Route: 048
     Dates: start: 202004
  2. MULTIVITAMIN [Concomitant]
     Active Substance: VITAMINS
     Dosage: DAILY
     Route: 048
     Dates: start: 202004
  3. SYMBICORT [Suspect]
     Active Substance: BUDESONIDE\FORMOTEROL FUMARATE DIHYDRATE
     Indication: CHRONIC OBSTRUCTIVE PULMONARY DISEASE
     Dosage: 160/4.5MCG, 2 PUFFS TWICE DAILY
     Route: 055
     Dates: start: 20200413
  4. SYMBICORT [Suspect]
     Active Substance: BUDESONIDE\FORMOTEROL FUMARATE DIHYDRATE
     Indication: EMPHYSEMA
     Dosage: 160/4.5MCG, 2 PUFFS TWICE DAILY
     Route: 055
     Dates: start: 20200413
  5. INCRUSE ELLIPTA [Concomitant]
     Active Substance: UMECLIDINIUM BROMIDE
     Indication: CHRONIC OBSTRUCTIVE PULMONARY DISEASE
     Dosage: 6.25 UG, 1 PUFF AT NIGHT
     Route: 055
     Dates: start: 202004
  6. OXYGEN. [Concomitant]
     Active Substance: OXYGEN
     Indication: OXYGEN THERAPY
     Dosage: 2 LITERS CONTINUOUSLY DURING THE DAY, 3 LITERS CONTINUOUSLY DURING THE NIGHT
     Route: 055

REACTIONS (6)
  - Incorrect dose administered by device [Unknown]
  - Nervousness [Unknown]
  - Product dose omission issue [Unknown]
  - Drug delivery system issue [Unknown]
  - Dyspnoea [Unknown]
  - Oxygen saturation decreased [Unknown]

NARRATIVE: CASE EVENT DATE: 202004
